FAERS Safety Report 19180603 (Version 1)
Quarter: 2021Q2

REPORT INFORMATION
  Report Type: Other
  Country: TR (occurrence: TR)
  Receive Date: 20210426
  Receipt Date: 20210426
  Transmission Date: 20210717
  Serious: Yes (Life-Threatening, Other)
  Sender: FDA-Public Use
  Company Number: TR-ASTELLAS-2021US014865

PATIENT
  Age: 48 Year
  Sex: Female

DRUGS (6)
  1. AMPHOTERICIN B, LIPOSOME [Suspect]
     Active Substance: AMPHOTERICIN B
     Indication: PYREXIA
     Dosage: 200 MG, UNKNOWN FREQ. FOR 8 DAYS
     Route: 042
  2. AVIL [PHENIRAMINE MALEATE] [Concomitant]
     Indication: PRODUCT USED FOR UNKNOWN INDICATION
     Dosage: UNK UNK, UNKNOWN FREQ.
     Route: 065
  3. ADRENALIN (EPINEPHRINE) [Concomitant]
     Active Substance: EPINEPHRINE
     Indication: PRODUCT USED FOR UNKNOWN INDICATION
     Dosage: UNK UNK, UNKNOWN FREQ.
     Route: 065
  4. LASIX [Concomitant]
     Active Substance: FUROSEMIDE
     Indication: PRODUCT USED FOR UNKNOWN INDICATION
     Dosage: UNK UNK, UNKNOWN FREQ.
     Route: 065
  5. AMPHOTERICIN B, LIPOSOME [Suspect]
     Active Substance: AMPHOTERICIN B
     Dosage: 350 MG, ONCE (TOTAL)
     Route: 042
     Dates: start: 20210402, end: 20210402
  6. PREDNOL [METHYLPREDNISOLONE] [Concomitant]
     Indication: PRODUCT USED FOR UNKNOWN INDICATION
     Dosage: UNK UNK, UNKNOWN FREQ.
     Route: 065

REACTIONS (4)
  - Angioedema [Recovered/Resolved]
  - Laryngeal oedema [Recovered/Resolved]
  - Dyspnoea [Recovered/Resolved]
  - Anaphylactic shock [Unknown]

NARRATIVE: CASE EVENT DATE: 20210402
